FAERS Safety Report 6561178-7 (Version None)
Quarter: 2010Q1

REPORT INFORMATION
  Report Type: 
  Country: None (occurrence: None)
  Receive Date: 20100130
  Receipt Date: 20091002
  Transmission Date: 20100710
  Serious: No
  Sender: FDA-Public Use
  Company Number: US-ABBOTT-09P-163-0600499-00

PATIENT
  Sex: Female
  Weight: 62.198 kg

DRUGS (2)
  1. HUMIRA [Suspect]
     Indication: CROHN'S DISEASE
     Dates: start: 20090731
  2. VITAMIN TAB [Concomitant]
     Indication: DRUG USE FOR UNKNOWN INDICATION
     Dates: start: 20090922

REACTIONS (7)
  - EAR INFECTION [None]
  - FUNGAL INFECTION [None]
  - GINGIVAL PAIN [None]
  - SINUSITIS [None]
  - STRESS [None]
  - TOOTHACHE [None]
  - WEIGHT DECREASED [None]
